FAERS Safety Report 9945330 (Version 1)
Quarter: 2014Q1

REPORT INFORMATION
  Report Type: Report from Study
  Country: US (occurrence: US)
  Receive Date: 20140303
  Receipt Date: 20140303
  Transmission Date: 20141002
  Serious: No
  Sender: FDA-Public Use
  Company Number: US-ABBVIE-13P-163-1049376-00

PATIENT
  Age: 20 Year
  Sex: Male

DRUGS (6)
  1. HUMIRA [Suspect]
     Indication: CROHN^S DISEASE
     Dates: start: 20120815
  2. HUMIRA [Suspect]
     Dates: start: 20130127
  3. SEROQUEL XR [Concomitant]
     Indication: DEPRESSION
     Dosage: 300 MG AT BEDTIME
  4. SEROQUEL XR [Concomitant]
     Indication: INSOMNIA
  5. OMEPRAZOLE [Concomitant]
     Indication: GASTROOESOPHAGEAL REFLUX DISEASE
     Dosage: 20 MG DAILY
  6. ASACOL HD [Concomitant]
     Indication: CROHN^S DISEASE
     Dosage: 800 MG, 3 TABS, TWICE DAILY

REACTIONS (9)
  - Cachexia [Not Recovered/Not Resolved]
  - Crohn^s disease [Not Recovered/Not Resolved]
  - Defaecation urgency [Not Recovered/Not Resolved]
  - Diarrhoea [Not Recovered/Not Resolved]
  - Haematochezia [Not Recovered/Not Resolved]
  - Abdominal pain [Not Recovered/Not Resolved]
  - Fatigue [Not Recovered/Not Resolved]
  - Drug ineffective [Not Recovered/Not Resolved]
  - Drug dose omission [Not Recovered/Not Resolved]
